FAERS Safety Report 4814787-7 (Version None)
Quarter: 2005Q4

REPORT INFORMATION
  Report Type: 
  Country: None (occurrence: None)
  Receive Date: 20051028
  Receipt Date: 20050927
  Transmission Date: 20060501
  Serious: Yes (Hospitalization)
  Sender: FDA-Public Use
  Company Number: GBWYE015429SEP05

PATIENT
  Sex: Female

DRUGS (3)
  1. ENBREL [Suspect]
     Indication: RHEUMATOID ARTHRITIS
     Dosage: UNKNOWN
     Dates: start: 20050801, end: 20050926
  2. DICLOFENAC [Concomitant]
  3. GOLD [Concomitant]
     Dates: start: 20040719, end: 20050711

REACTIONS (1)
  - TRANSIENT ISCHAEMIC ATTACK [None]
